FAERS Safety Report 17563461 (Version 1)
Quarter: 2020Q1

REPORT INFORMATION
  Report Type: Spontaneous
  Country: CN (occurrence: CN)
  Receive Date: 20200320
  Receipt Date: 20200320
  Transmission Date: 20200409
  Serious: Yes (Other)
  Sender: FDA-Public Use
  Company Number: CN-ROCHE-2570930

PATIENT
  Age: 61 Year
  Sex: Male

DRUGS (1)
  1. ACTILYSE [Suspect]
     Active Substance: ALTEPLASE
     Indication: EMBOLIC STROKE
     Route: 042

REACTIONS (2)
  - No adverse event [Unknown]
  - Drug ineffective [Unknown]
